FAERS Safety Report 26064403 (Version 1)
Quarter: 2025Q4

REPORT INFORMATION
  Report Type: Spontaneous
  Country: US (occurrence: US)
  Receive Date: 20251119
  Receipt Date: 20251119
  Transmission Date: 20260117
  Serious: No
  Sender: SANOFI AVENTIS
  Company Number: US-SA-2025SA345045

PATIENT
  Age: 37 Year
  Sex: Male

DRUGS (9)
  1. DUPIXENT [Suspect]
     Active Substance: DUPILUMAB
     Indication: Eosinophilic oesophagitis
     Dosage: 1 DF, QW
     Route: 058
     Dates: start: 20230920
  2. GABAPENTIN [Concomitant]
     Active Substance: GABAPENTIN
  3. LISINOPRIL [Concomitant]
     Active Substance: LISINOPRIL
  4. MELOXICAM [Concomitant]
     Active Substance: MELOXICAM
  5. OMEPRAZOLE [Concomitant]
     Active Substance: OMEPRAZOLE
  6. PROBIOTICS NOS [Concomitant]
     Active Substance: PROBIOTICS NOS
  7. RIZATRIPTAN [Concomitant]
     Active Substance: RIZATRIPTAN
  8. SERTRALINE [Concomitant]
     Active Substance: SERTRALINE HYDROCHLORIDE
  9. ZALEPLON [Concomitant]
     Active Substance: ZALEPLON

REACTIONS (2)
  - Eosinophilic oesophagitis [Unknown]
  - Product dose omission issue [Unknown]
